FAERS Safety Report 5655572-6 (Version None)
Quarter: 2008Q1

REPORT INFORMATION
  Report Type: 
  Country: None (occurrence: None)
  Receive Date: 20080307
  Receipt Date: 20080227
  Transmission Date: 20080703
  Serious: Yes (Other)
  Sender: FDA-Public Use
  Company Number: JP-ROCHE-537702

PATIENT
  Age: 20 Year
  Sex: Female
  Weight: 29 kg

DRUGS (4)
  1. ROCEPHIN [Suspect]
     Indication: PNEUMONIA
     Route: 041
     Dates: start: 20070525, end: 20070525
  2. RIVOTRIL [Concomitant]
     Dosage: FORMULATION: FINE GRANULE.
     Route: 048
  3. SELENICA-R [Concomitant]
     Route: 048
  4. ZONISAMIDE [Concomitant]
     Dosage: FORMULATION: FINE GRANULE.
     Route: 048

REACTIONS (1)
  - ANAPHYLACTOID REACTION [None]
